FAERS Safety Report 7734918-9 (Version None)
Quarter: 2011Q3

REPORT INFORMATION
  Report Type: 
  Country: None (occurrence: None)
  Receive Date: 20110907
  Receipt Date: 20110831
  Transmission Date: 20111222
  Serious: No
  Sender: FDA-Public Use
  Company Number: US-TYCO HEALTHCARE/MALLINCKRODT-T201101669

PATIENT
  Sex: Female

DRUGS (5)
  1. EXALGO [Suspect]
     Indication: PAIN
     Dosage: 12 MG, QD
     Route: 048
     Dates: start: 20110803
  2. PERCOCET [Concomitant]
     Dosage: 5/325 MG, BID, PRN
  3. FLEXERIL [Concomitant]
     Dosage: UNK
  4. PROZAC [Concomitant]
     Dosage: UNK
  5. BUSPAR [Concomitant]
     Dosage: UNK

REACTIONS (1)
  - ANXIETY [None]
